FAERS Safety Report 9146862 (Version 2)
Quarter: 2013Q1

REPORT INFORMATION
  Report Type: Spontaneous
  Country: JP (occurrence: JP)
  Receive Date: 20130307
  Receipt Date: 20130314
  Transmission Date: 20140127
  Serious: Yes (Death, Other)
  Sender: FDA-Public Use
  Company Number: JP-BAXTER-2013BAX007964

PATIENT
  Sex: Female
  Weight: 53 kg

DRUGS (2)
  1. DIANEAL-N PD-4 2.5 PD SOLUTION [Suspect]
     Indication: NEPHROSCLEROSIS
     Route: 033
     Dates: start: 20020716, end: 20130228
  2. EXTRANEAL PD SOLUTION [Suspect]
     Indication: NEPHROSCLEROSIS
     Route: 033
     Dates: start: 20041201, end: 20130228

REACTIONS (2)
  - Sepsis [Fatal]
  - Peritonitis [Unknown]
